FAERS Safety Report 15258464 (Version 1)
Quarter: 2018Q3

REPORT INFORMATION
  Report Type: Spontaneous
  Country: IN (occurrence: IN)
  Receive Date: 20180809
  Receipt Date: 20180809
  Transmission Date: 20181010
  Serious: Yes (Other)
  Sender: FDA-Public Use
  Company Number: IN-CONCORDIA PHARMACEUTICALS INC.-GSH201807-002754

PATIENT
  Age: 66 Year
  Sex: Male

DRUGS (5)
  1. NORADRENALIN [Concomitant]
     Active Substance: NOREPINEPHRINE\NOREPINEPHRINE BITARTRATE
  2. CRYSTALLOIDS [Concomitant]
     Active Substance: UNSPECIFIED INGREDIENT
     Route: 042
  3. PHENOXYBENZAMINE [Suspect]
     Active Substance: PHENOXYBENZAMINE
     Indication: HYPERTENSION
  4. HUMAN ACTRAPID INSULIN [Concomitant]
     Indication: HYPERGLYCAEMIA
  5. BETA BLOCKERS [Concomitant]
     Active Substance: UNSPECIFIED INGREDIENT
     Indication: HYPERTENSION

REACTIONS (1)
  - Phaeochromocytoma [Unknown]
